FAERS Safety Report 24614616 (Version 9)
Quarter: 2025Q1

REPORT INFORMATION
  Report Type: Spontaneous
  Country: US (occurrence: US)
  Receive Date: 20241113
  Receipt Date: 20250311
  Transmission Date: 20250408
  Serious: No
  Sender: PFIZER
  Company Number: US-PFIZER INC-202400277539

PATIENT
  Age: 49 Year
  Sex: Female
  Weight: 73.016 kg

DRUGS (7)
  1. TIVDAK [Suspect]
     Active Substance: TISOTUMAB VEDOTIN-TFTV
     Dates: start: 20241014
  2. TIVDAK [Suspect]
     Active Substance: TISOTUMAB VEDOTIN-TFTV
     Dosage: 154 MG INFUSION, EVERY 3 WEEKS
     Dates: start: 20241028
  3. TIVDAK [Suspect]
     Active Substance: TISOTUMAB VEDOTIN-TFTV
     Route: 042
     Dates: start: 20241125
  4. TIVDAK [Suspect]
     Active Substance: TISOTUMAB VEDOTIN-TFTV
     Dosage: 147 MG, EVERY 3 WEEKS
     Route: 042
     Dates: start: 20241202
  5. TIVDAK [Suspect]
     Active Substance: TISOTUMAB VEDOTIN-TFTV
     Dosage: 146 MG, EVERY 3 WEEKS
     Route: 042
  6. TIVDAK [Suspect]
     Active Substance: TISOTUMAB VEDOTIN-TFTV
     Dosage: 154 MG INFUSION, EVERY 3 WEEKS
  7. TIVDAK [Suspect]
     Active Substance: TISOTUMAB VEDOTIN-TFTV
     Dosage: 148 MG (4 VIALS VIA IV) EVERY THREE WEEKS
     Route: 042

REACTIONS (1)
  - Weight decreased [Unknown]

NARRATIVE: CASE EVENT DATE: 20241107
